FAERS Safety Report 5428137-9 (Version None)
Quarter: 2007Q3

REPORT INFORMATION
  Report Type: 
  Country: None (occurrence: None)
  Receive Date: 20070828
  Receipt Date: 20070612
  Transmission Date: 20080115
  Serious: No
  Sender: FDA-Public Use
  Company Number: US-BOEHRINGER INGELHEIM PHARMACEUTICALS, INC.-2007-BP-08965BP

PATIENT
  Age: 61 Year
  Sex: Male

DRUGS (16)
  1. CATAPRES-TTS-1 [Suspect]
     Indication: HYPERTENSION
     Route: 061
     Dates: start: 20070101, end: 20070501
  2. LASIX [Concomitant]
  3. ACTOS [Concomitant]
  4. DIOVAN [Concomitant]
  5. ASPIRIN [Concomitant]
  6. ALLOPURINOL [Concomitant]
  7. METOPROLOL SUCCINATE [Concomitant]
  8. CYMBALTA [Concomitant]
  9. LOPID [Concomitant]
  10. NORVASC [Concomitant]
  11. NEXIUM [Concomitant]
  12. UROCT-K [Concomitant]
  13. VYTORIN [Concomitant]
  14. PROCRIT [Concomitant]
  15. DOXAZOSIN MESYLATE [Concomitant]
  16. INSULIN PUMP [Concomitant]

REACTIONS (1)
  - BLOOD PRESSURE INCREASED [None]
